FAERS Safety Report 9212753 (Version 3)
Quarter: 2016Q1

REPORT INFORMATION
  Report Type: Report from Study
  Country: GB (occurrence: US)
  Receive Date: 20130405
  Receipt Date: 20160115
  Transmission Date: 20160526
  Serious: Yes (Hospitalization)
  Sender: FDA-Public Use
  Company Number: GB-009507513-1302GBR003964

PATIENT
  Age: 72 Year
  Sex: Female
  Weight: 74 kg

DRUGS (14)
  1. DOLOGEN (ACETAMINOPHEN (+) IBUPROFEN) [Concomitant]
     Indication: TORTICOLLIS
     Dosage: 650 MG, UNKNOWN
     Dates: start: 20121218, end: 20121222
  2. BOCEPREVIR [Suspect]
     Active Substance: BOCEPREVIR
     Indication: CHRONIC HEPATITIS C
     Dosage: 4 TO 10TH WEEK (800 MG, 3 IN 1 D)
     Route: 048
     Dates: end: 20121103
  3. FERROUS SULFATE [Concomitant]
     Active Substance: FERROUS SULFATE\FERROUS SULFATE, DRIED
     Indication: ANAEMIA
     Dosage: 325 MG, QD
     Route: 048
     Dates: start: 20120926
  4. LEVOXYL [Concomitant]
     Active Substance: LEVOTHYROXINE SODIUM
     Indication: HYPOTHYROIDISM
     Dosage: 0.25 MG, QD
     Dates: start: 2011
  5. ZANTAC [Concomitant]
     Active Substance: RANITIDINE HYDROCHLORIDE
     Indication: GASTROOESOPHAGEAL REFLUX DISEASE
     Dosage: 150 MG, PRN
     Dates: start: 2010
  6. RIBAVIRIN. [Suspect]
     Active Substance: RIBAVIRIN
     Indication: CHRONIC HEPATITIS C
     Dosage: 1000 MG, 1 IN 1 D
     Route: 048
     Dates: start: 20120822, end: 20121103
  7. PLACEBO [Suspect]
     Active Substance: UNSPECIFIED INGREDIENT
     Indication: CHRONIC HEPATITIS C
     Dosage: UNK
     Route: 048
     Dates: start: 20120822, end: 20121103
  8. PREDNISONE. [Concomitant]
     Active Substance: PREDNISONE
     Indication: TORTICOLLIS
     Dosage: 20 MG, UNK
     Route: 048
     Dates: start: 20121126, end: 20121130
  9. ATENOLOL. [Concomitant]
     Active Substance: ATENOLOL
     Indication: HYPERTENSION
     Dosage: UNK
     Dates: start: 20120921, end: 20121021
  10. FOLIC ACID. [Concomitant]
     Active Substance: FOLIC ACID
     Indication: ANAEMIA
     Dosage: 1 MG, QD
     Dates: start: 20120926
  11. TORADOL [Concomitant]
     Active Substance: KETOROLAC TROMETHAMINE
     Indication: TORTICOLLIS
     Dosage: UNK
     Dates: start: 20121111, end: 20121111
  12. PREDNISONE. [Concomitant]
     Active Substance: PREDNISONE
     Dosage: 5 MG, Q6H
     Dates: start: 20121201, end: 20121206
  13. PEGINTERFERON ALFA-2A [Suspect]
     Active Substance: PEGINTERFERON ALFA-2A
     Indication: CHRONIC HEPATITIS C
     Dosage: 180 MICROGRAM, FREQUENCY: QS
     Route: 058
     Dates: start: 20120822, end: 20121103
  14. LOSARTAN POTASSIUM. [Concomitant]
     Active Substance: LOSARTAN POTASSIUM
     Indication: HYPERTENSION
     Dosage: UNK
     Dates: start: 2011

REACTIONS (1)
  - Anaemia [Recovered/Resolved]

NARRATIVE: CASE EVENT DATE: 20121003
